FAERS Safety Report 9454446 (Version 2)
Quarter: 2013Q3

REPORT INFORMATION
  Report Type: Spontaneous
  Country: US (occurrence: None)
  Receive Date: 20130808
  Receipt Date: 20130826
  Transmission Date: 20140515
  Serious: Yes (Hospitalization)
  Sender: FDA-Public Use
  Company Number: 150158

PATIENT
  Age: 76 Year
  Sex: Female

DRUGS (1)
  1. ACETYLCYSTEINE [Suspect]
     Indication: COUGH
     Dosage: 9 MG, 1 IN 1 D
     Route: 048
     Dates: start: 20130623

REACTIONS (2)
  - Idiopathic pulmonary fibrosis [None]
  - Asthma [None]
